FAERS Safety Report 10265456 (Version 3)
Quarter: 2014Q3

REPORT INFORMATION
  Report Type: Report from Study
  Country: ES (occurrence: ES)
  Receive Date: 20140627
  Receipt Date: 20140707
  Transmission Date: 20150326
  Serious: Yes (Other)
  Sender: FDA-Public Use
  Company Number: ES-009507513-1406ESP009144

PATIENT
  Age: 70 Year
  Sex: Female
  Weight: 81.6 kg

DRUGS (7)
  1. ASPIRIN. [Concomitant]
     Active Substance: ASPIRIN
     Dosage: TOTAL DAILY DOSE: 100 (UNIT NOT PROVIDED)
     Dates: start: 20071031
  2. NEBIVOLOL [Concomitant]
     Active Substance: NEBIVOLOL
     Dosage: TOTAL DAILY DOSE: 5 MG
     Route: 048
     Dates: start: 20071203
  3. SIMVASTATIN. [Suspect]
     Active Substance: SIMVASTATIN
     Indication: ACUTE CORONARY SYNDROME
     Dosage: 40 MG, QD
     Route: 048
     Dates: start: 20071031
  4. AMLODIPINE [Concomitant]
     Active Substance: AMLODIPINE BESYLATE
     Dosage: TOTAL DAILY DOSE: 5 MG
     Route: 048
     Dates: start: 20080722
  5. VALSARTAN. [Concomitant]
     Active Substance: VALSARTAN
     Dosage: TOTAL DAILY DOSE: 160 MG
     Route: 048
     Dates: start: 20071202
  6. METFORMIN [Concomitant]
     Active Substance: METFORMIN HYDROCHLORIDE
     Dosage: TOTAL DAILY DOSE: 1700 MG
     Dates: start: 20071203
  7. HYDROCHLOROTHIAZIDE. [Concomitant]
     Active Substance: HYDROCHLOROTHIAZIDE
     Dosage: TOTAL DAILY DOSE: 25 MG
     Route: 048
     Dates: start: 20071203

REACTIONS (1)
  - Atypical fibroxanthoma [Recovered/Resolved]

NARRATIVE: CASE EVENT DATE: 20140213
